FAERS Safety Report 7698975-0 (Version None)
Quarter: 2011Q3

REPORT INFORMATION
  Report Type: 
  Country: None (occurrence: None)
  Receive Date: 20110819
  Receipt Date: 20110804
  Transmission Date: 20111222
  Serious: Yes (Hospitalization)
  Sender: FDA-Public Use
  Company Number: IT-BAYER-2011-068963

PATIENT
  Age: 22 Year
  Sex: Male

DRUGS (1)
  1. ACETYLSALICYLIC ACID SRT [Suspect]
     Indication: RHINITIS
     Dosage: DAILY DOSE 100 MG
     Route: 048
     Dates: start: 20110412, end: 20110412

REACTIONS (1)
  - URTICARIA [None]
